FAERS Safety Report 20709531 (Version 2)
Quarter: 2022Q2

REPORT INFORMATION
  Report Type: Spontaneous
  Country: PL (occurrence: None)
  Receive Date: 20220414
  Receipt Date: 20220511
  Transmission Date: 20220721
  Serious: Yes (Other)
  Sender: FDA-Public Use
  Company Number: PL-ROCHE-3071840

PATIENT

DRUGS (1)
  1. GAVRETO [Suspect]
     Active Substance: PRALSETINIB
     Indication: Product used for unknown indication
     Route: 048

REACTIONS (6)
  - Seizure [Unknown]
  - Fatigue [Unknown]
  - Dry mouth [Unknown]
  - Vascular rupture [Unknown]
  - Hair disorder [Unknown]
  - Overdose [Unknown]
